FAERS Safety Report 5496168-9 (Version None)
Quarter: 2007Q4

REPORT INFORMATION
  Report Type: 
  Country: None (occurrence: None)
  Receive Date: 20071023
  Receipt Date: 20071023
  Transmission Date: 20080405
  Serious: Yes (Hospitalization)
  Sender: FDA-Public Use
  Company Number: None

PATIENT
  Age: 77 Year
  Sex: Male

DRUGS (1)
  1. ROSIGLITAZONE [Suspect]
     Indication: DIABETES MELLITUS
     Dosage: 4MG BID PO
     Route: 048
     Dates: start: 20070323, end: 20071018

REACTIONS (3)
  - CARDIAC FAILURE [None]
  - OEDEMA [None]
  - UPPER RESPIRATORY TRACT INFECTION [None]
